FAERS Safety Report 17574440 (Version 1)
Quarter: 2020Q1

REPORT INFORMATION
  Report Type: Spontaneous
  Country: DE (occurrence: DE)
  Receive Date: 20200324
  Receipt Date: 20200324
  Transmission Date: 20200409
  Serious: Yes (Hospitalization, Other)
  Sender: FDA-Public Use
  Company Number: DE-AUROBINDO-AUR-APL-2020-015261

PATIENT
  Age: 30 Year
  Sex: Male

DRUGS (3)
  1. VENLAFAXINE [Suspect]
     Active Substance: VENLAFAXINE HYDROCHLORIDE
     Indication: PRODUCT USED FOR UNKNOWN INDICATION
     Dosage: 300 MILLIGRAM, DAILY
     Route: 065
  2. QUETIAPINE. [Concomitant]
     Active Substance: QUETIAPINE
     Dosage: 1200 MILLIGRAM, DAILY
     Route: 065
  3. QUETIAPINE. [Concomitant]
     Active Substance: QUETIAPINE
     Indication: PRODUCT USED FOR UNKNOWN INDICATION
     Dosage: 700 MILLIGRAM, DAILY;UP TO A MAXIMUM OF 700 MG PER DAY
     Route: 065

REACTIONS (8)
  - Drug abuse [Unknown]
  - Psychomotor hyperactivity [Recovering/Resolving]
  - Withdrawal syndrome [Unknown]
  - Drug dependence [Unknown]
  - Mania [Recovered/Resolved]
  - Off label use [Unknown]
  - Intentional product misuse [Unknown]
  - Treatment noncompliance [Unknown]
